FAERS Safety Report 8144498-4 (Version None)
Quarter: 2012Q1

REPORT INFORMATION
  Report Type: 
  Country: None (occurrence: None)
  Receive Date: 20120217
  Receipt Date: 20120204
  Transmission Date: 20120608
  Serious: Yes (Disabling)
  Sender: FDA-Public Use
  Company Number: TH-ROCHE-1040903

PATIENT
  Sex: Male

DRUGS (1)
  1. LUCENTIS [Suspect]
     Indication: BLINDNESS
     Route: 050

REACTIONS (3)
  - BLINDNESS UNILATERAL [None]
  - VISION BLURRED [None]
  - INAPPROPRIATE SCHEDULE OF DRUG ADMINISTRATION [None]
